FAERS Safety Report 24224890 (Version 1)
Quarter: 2024Q3

REPORT INFORMATION
  Report Type: Spontaneous
  Country: BE (occurrence: BE)
  Receive Date: 20240819
  Receipt Date: 20240819
  Transmission Date: 20241017
  Serious: Yes (Life-Threatening, Hospitalization, Disabling, Other)
  Sender: ABBVIE
  Company Number: None

PATIENT
  Age: 36 Year
  Sex: Male
  Weight: 55 kg

DRUGS (1)
  1. RINVOQ [Suspect]
     Active Substance: UPADACITINIB
     Indication: Crohn^s disease
     Dosage: 45 MG
     Route: 048
     Dates: start: 20240710, end: 20240715

REACTIONS (20)
  - Blood pressure decreased [Recovered/Resolved]
  - Speech disorder developmental [Recovered/Resolved]
  - Tinnitus [Recovered/Resolved]
  - Fatigue [Recovered/Resolved]
  - Abscess intestinal [Recovered/Resolved]
  - Sepsis [Recovered/Resolved]
  - Dehydration [Recovered/Resolved]
  - Loss of consciousness [Recovered/Resolved]
  - Psychomotor retardation [Recovered/Resolved]
  - Asthenia [Recovered/Resolved]
  - Malaise [Recovered/Resolved]
  - Abdominal pain lower [Recovered/Resolved]
  - C-reactive protein abnormal [Recovered/Resolved]
  - Diarrhoea [Recovered/Resolved]
  - Asthenia [Recovered/Resolved]
  - Decreased appetite [Recovered/Resolved]
  - Head discomfort [Recovered/Resolved]
  - Pyrexia [Recovered/Resolved]
  - Faeces soft [Recovered/Resolved]
  - Intestinal stenosis [Recovered/Resolved]

NARRATIVE: CASE EVENT DATE: 20240711
